FAERS Safety Report 6275951-6 (Version None)
Quarter: 2009Q3

REPORT INFORMATION
  Report Type: 
  Country: None (occurrence: None)
  Receive Date: 20090720
  Receipt Date: 20090710
  Transmission Date: 20100115
  Serious: Yes (Hospitalization, Other)
  Sender: FDA-Public Use
  Company Number: 2008SP017980

PATIENT
  Age: 27 Year
  Sex: Female
  Weight: 113 kg

DRUGS (20)
  1. PEG-INTRON [Suspect]
     Indication: HEPATITIS C
     Dosage: 90 MCG; QW; SC
     Route: 058
     Dates: start: 20080717, end: 20081105
  2. REBETOL [Suspect]
     Indication: HEPATITIS C
     Dosage: 600 MG; BID; PO
     Route: 048
     Dates: start: 20080717, end: 20081105
  3. CIPRO [Concomitant]
  4. PRISTIQ [Concomitant]
  5. KRISTALOSE [Concomitant]
  6. LASIX [Concomitant]
  7. MELATONIN [Concomitant]
  8. MILK THISTLE [Concomitant]
  9. PRILOSEC [Concomitant]
  10. SPIRONOLACTONE [Concomitant]
  11. XIFAXAN [Concomitant]
  12. ZINC SULFATE [Concomitant]
  13. TACROLIMUS [Concomitant]
  14. ATIVAN [Concomitant]
  15. EFFEXOR [Concomitant]
  16. METOPROLOL TARTRATE [Concomitant]
  17. OMEPRAZOLE [Concomitant]
  18. PERCOCET [Concomitant]
  19. BACTRIM DS [Concomitant]
  20. PHENERGAN [Concomitant]

REACTIONS (11)
  - BACTERIA STOOL IDENTIFIED [None]
  - CLOSTRIDIAL INFECTION [None]
  - CONDITION AGGRAVATED [None]
  - CYTOMEGALOVIRUS INFECTION [None]
  - DEHYDRATION [None]
  - DRUG TOXICITY [None]
  - PAIN IN EXTREMITY [None]
  - PANCYTOPENIA [None]
  - PELVIC PAIN [None]
  - RENAL FAILURE [None]
  - VAGINAL HAEMORRHAGE [None]
